FAERS Safety Report 8614528-1 (Version None)
Quarter: 2012Q3

REPORT INFORMATION
  Report Type: 
  Country: None (occurrence: None)
  Receive Date: 20120823
  Receipt Date: 20120820
  Transmission Date: 20120928
  Serious: Yes (Hospitalization)
  Sender: FDA-Public Use
  Company Number: PHHY2012FR038334

PATIENT
  Sex: Female
  Weight: 80 kg

DRUGS (4)
  1. LAMICTAL [Concomitant]
     Indication: IDIOPATHIC GENERALISED EPILEPSY
     Dosage: 100 MG, BID
     Dates: start: 20060101
  2. PAROXETINE HCL [Concomitant]
     Indication: DEPRESSION
     Dosage: 20 MG, QD
     Dates: start: 20060101
  3. CLOBAZAM [Concomitant]
     Indication: DEPRESSION
     Dosage: 10 MG, QD
  4. TEGRETOL [Suspect]
     Indication: EPILEPSY
     Dosage: 400 MG, QD
     Dates: start: 20120323

REACTIONS (25)
  - BRONCHIAL DISORDER [None]
  - REVERSIBLE AIRWAYS OBSTRUCTION [None]
  - HEPATITIS CHOLESTATIC [None]
  - HEPATOMEGALY [None]
  - MONONUCLEOSIS SYNDROME [None]
  - ERYTHEMA [None]
  - DIARRHOEA [None]
  - TOXIC SKIN ERUPTION [None]
  - DRUG RASH WITH EOSINOPHILIA AND SYSTEMIC SYMPTOMS [None]
  - LYMPHADENOPATHY [None]
  - RASH MACULO-PAPULAR [None]
  - RASH ERYTHEMATOUS [None]
  - PRURITUS [None]
  - BLOOD IRON INCREASED [None]
  - XEROSIS [None]
  - ROSEOLOVIRUS TEST POSITIVE [None]
  - RESPIRATORY DISTRESS [None]
  - ARTHRALGIA [None]
  - BLOOD LACTATE DEHYDROGENASE INCREASED [None]
  - OEDEMA [None]
  - PYREXIA [None]
  - EOSINOPHIL COUNT ABNORMAL [None]
  - BRONCHOSPASM [None]
  - INFLUENZA LIKE ILLNESS [None]
  - COUGH [None]
